FAERS Safety Report 18513702 (Version 2)
Quarter: 2020Q4

REPORT INFORMATION
  Report Type: Spontaneous
  Country: CO (occurrence: CO)
  Receive Date: 20201117
  Receipt Date: 20201123
  Transmission Date: 20210114
  Serious: Yes (Death, Hospitalization)
  Sender: FDA-Public Use
  Company Number: CO-BIOMARINAP-CO-2020-133366

PATIENT
  Age: 50 Year
  Sex: Female
  Weight: 25.5 kg

DRUGS (5)
  1. METOPROLOL. [Concomitant]
     Active Substance: METOPROLOL
     Indication: PRODUCT USED FOR UNKNOWN INDICATION
     Dosage: 25 MILLIGRAM, BID
  2. FLUOXETINE [Concomitant]
     Active Substance: FLUOXETINE HYDROCHLORIDE
     Indication: PRODUCT USED FOR UNKNOWN INDICATION
     Dosage: UNK
     Dates: end: 20201111
  3. VIMIZIM [Suspect]
     Active Substance: ELOSULFASE ALFA
     Indication: MUCOPOLYSACCHARIDOSIS IV
     Dosage: 55 MILLIGRAM, QW
     Route: 042
     Dates: start: 20160624
  4. SALMETEROL [Concomitant]
     Active Substance: SALMETEROL
     Indication: RESTRICTIVE PULMONARY DISEASE
     Dosage: UNK, BID
  5. OXYGEN. [Concomitant]
     Active Substance: OXYGEN
     Indication: RESTRICTIVE PULMONARY DISEASE
     Dosage: 3 LITER, QD

REACTIONS (8)
  - Pneumonia [Fatal]
  - Hypercapnia [Unknown]
  - Oxygen saturation decreased [Unknown]
  - General physical health deterioration [Unknown]
  - Fatigue [Unknown]
  - Narcolepsy [Unknown]
  - Hypotension [Unknown]
  - Bradycardia [Unknown]

NARRATIVE: CASE EVENT DATE: 20201111
